FAERS Safety Report 7912544-6 (Version None)
Quarter: 2011Q4

REPORT INFORMATION
  Report Type: 
  Country: None (occurrence: None)
  Receive Date: 20111114
  Receipt Date: 20111109
  Transmission Date: 20120403
  Serious: No
  Sender: FDA-Public Use
  Company Number: US-PFIZER INC-2011274968

PATIENT
  Sex: Male
  Weight: 8.6 kg

DRUGS (7)
  1. VITAMIN B-12 [Concomitant]
     Indication: PROPHYLAXIS
  2. GENOTROPIN [Suspect]
     Indication: GROWTH HORMONE DEFICIENCY
     Dosage: 0.5 MG, DAILY
     Route: 058
     Dates: start: 20110819
  3. PROZAC [Concomitant]
     Indication: TRISOMY 21
  4. LEUCOVORIN CALCIUM [Concomitant]
     Indication: METABOLIC DISORDER
     Dosage: 400 UG, DAILY
  5. LEUCOVORIN CALCIUM [Concomitant]
     Indication: PROPHYLAXIS
  6. VITAMIN B-12 [Concomitant]
     Indication: METABOLIC DISORDER
     Dosage: 200 UG, DAILY
  7. PROZAC [Concomitant]
     Indication: NERVOUS SYSTEM DISORDER
     Dosage: 3 MG, DAILY
     Route: 048

REACTIONS (3)
  - PAIN [None]
  - AGITATION [None]
  - CRYING [None]
